FAERS Safety Report 6790172-6 (Version None)
Quarter: 2010Q2

REPORT INFORMATION
  Report Type: 
  Country: None (occurrence: None)
  Receive Date: 20100624
  Receipt Date: 20100621
  Transmission Date: 20101027
  Serious: Yes (Hospitalization, Other)
  Sender: FDA-Public Use
  Company Number: US-PURDUE-USA-2009-0040282

PATIENT
  Sex: Female
  Weight: 50.794 kg

DRUGS (1)
  1. RYZOLT [Suspect]
     Indication: BACK PAIN
     Dosage: UNK
     Dates: start: 20080801

REACTIONS (5)
  - CONFUSIONAL STATE [None]
  - DIZZINESS [None]
  - PARALYSIS [None]
  - PSYCHOTIC DISORDER [None]
  - VOMITING [None]
